FAERS Safety Report 7992166-1 (Version None)
Quarter: 2011Q4

REPORT INFORMATION
  Report Type: 
  Country: None (occurrence: None)
  Receive Date: 20111219
  Receipt Date: 20110117
  Transmission Date: 20120403
  Serious: No
  Sender: FDA-Public Use
  Company Number: US-ASTRAZENECA-2010SE57881

PATIENT
  Age: 87 Year
  Sex: Female

DRUGS (3)
  1. CRESTOR [Suspect]
     Indication: HYPERCHOLESTEROLAEMIA
     Route: 048
  2. CRESTOR [Suspect]
     Indication: CARDIAC DISORDER
     Route: 048
  3. FOSAMAX [Concomitant]
     Indication: BONE DISORDER

REACTIONS (3)
  - PALPITATIONS [None]
  - BONE DISORDER [None]
  - OSTEOPOROSIS [None]
